FAERS Safety Report 25769969 (Version 2)
Quarter: 2025Q3

REPORT INFORMATION
  Report Type: Spontaneous
  Country: US (occurrence: US)
  Receive Date: 20250907
  Receipt Date: 20250928
  Transmission Date: 20251020
  Serious: No
  Sender: ELI LILLY AND COMPANY
  Company Number: US-ELI_LILLY_AND_COMPANY-US202509005882

PATIENT
  Age: 72 Year
  Sex: Female

DRUGS (3)
  1. REZVOGLAR KWIKPEN [Suspect]
     Active Substance: INSULIN GLARGINE-AGLR
     Indication: Cataract
     Route: 065
  2. REZVOGLAR KWIKPEN [Suspect]
     Active Substance: INSULIN GLARGINE-AGLR
     Indication: Type 2 diabetes mellitus
     Route: 065
  3. REZVOGLAR KWIKPEN [Suspect]
     Active Substance: INSULIN GLARGINE-AGLR
     Route: 065

REACTIONS (2)
  - Incorrect dose administered [Unknown]
  - Anxiety [Not Recovered/Not Resolved]
